FAERS Safety Report 5694017-7 (Version None)
Quarter: 2008Q2

REPORT INFORMATION
  Report Type: 
  Country: None (occurrence: None)
  Receive Date: 20080401
  Receipt Date: 20080319
  Transmission Date: 20081010
  Serious: Yes (Other)
  Sender: FDA-Public Use
  Company Number: CHPA2008US03253

PATIENT
  Age: 56 Year
  Sex: Male

DRUGS (1)
  1. 4 WAY MENTHOLATED NASAL SPRAY (NCH)(PHENYLEPHRINE) NASAL SPRAY [Suspect]
     Indication: NASAL CONGESTION
     Dosage: NASAL
     Route: 045

REACTIONS (7)
  - BLOOD MERCURY ABNORMAL [None]
  - DIABETES MELLITUS [None]
  - HYPERTENSION [None]
  - INTENTIONAL DRUG MISUSE [None]
  - PROSTATIC DISORDER [None]
  - SINUS DISORDER [None]
  - THYROID DISORDER [None]
